FAERS Safety Report 5611129-4 (Version None)
Quarter: 2008Q1

REPORT INFORMATION
  Report Type: 
  Country: None (occurrence: None)
  Receive Date: 20080129
  Receipt Date: 20080121
  Transmission Date: 20080703
  Serious: Yes (Hospitalization, Other)
  Sender: FDA-Public Use
  Company Number: 2008SP001675

PATIENT
  Sex: Male

DRUGS (2)
  1. REBETOL [Suspect]
     Indication: HEPATITIS C
     Dosage: PO
     Route: 048
     Dates: start: 20070101
  2. PEGASYS [Suspect]
     Indication: HEPATITIS C
     Dates: start: 20070101

REACTIONS (7)
  - ASTHENIA [None]
  - CARDIAC DISORDER [None]
  - DYSPNOEA [None]
  - MEMORY IMPAIRMENT [None]
  - PULMONARY OEDEMA [None]
  - THINKING ABNORMAL [None]
  - UNEVALUABLE EVENT [None]
